FAERS Safety Report 24742923 (Version 1)
Quarter: 2024Q4

REPORT INFORMATION
  Report Type: Spontaneous
  Country: FR (occurrence: FR)
  Receive Date: 20241217
  Receipt Date: 20241217
  Transmission Date: 20250115
  Serious: Yes (Other)
  Sender: NOVARTIS
  Company Number: None

PATIENT
  Sex: Female

DRUGS (1)
  1. BEOVU [Suspect]
     Active Substance: BROLUCIZUMAB-DBLL
     Indication: Age-related macular degeneration
     Dosage: 1 DOSAGE FORM, ONCE/SINGLE
     Route: 031
     Dates: start: 202407, end: 202407

REACTIONS (2)
  - Eye inflammation [Recovering/Resolving]
  - Ocular vasculitis [Unknown]

NARRATIVE: CASE EVENT DATE: 20240828
